FAERS Safety Report 6089143-7 (Version None)
Quarter: 2009Q1

REPORT INFORMATION
  Report Type: 
  Country: None (occurrence: None)
  Receive Date: 20090220
  Receipt Date: 20090220
  Transmission Date: 20090719
  Serious: Yes (Hospitalization)
  Sender: FDA-Public Use
  Company Number: None

PATIENT
  Age: 75 Year
  Sex: Female
  Weight: 61.4 kg

DRUGS (14)
  1. ALLOPURINOL 100MG TAB [Suspect]
     Indication: GOUT
     Dosage: 100MG  TWICE DAILY PO
     Route: 048
     Dates: end: 20081019
  2. ATENOLOL [Concomitant]
  3. FIORINAL WITH CODIENE [Concomitant]
  4. LASIX [Concomitant]
  5. LEVOTHYROXINE SODIUM [Concomitant]
  6. METHYLPREDNISOLONE [Concomitant]
  7. OMEPRAZOLE [Concomitant]
  8. PHENYTOIN [Concomitant]
  9. ROBAXIN [Concomitant]
  10. SIMVASTATIN [Concomitant]
  11. SODIUM BICARBONATE [Concomitant]
  12. TEMAZEPAM [Concomitant]
  13. ZYRTEC [Concomitant]
  14. DIFLUCAN [Concomitant]

REACTIONS (11)
  - ALANINE AMINOTRANSFERASE INCREASED [None]
  - ASPARTATE AMINOTRANSFERASE INCREASED [None]
  - BLOOD ALKALINE PHOSPHATASE INCREASED [None]
  - HYPOVOLAEMIA [None]
  - ORAL CANDIDIASIS [None]
  - PAIN [None]
  - RENAL FAILURE ACUTE [None]
  - RETCHING [None]
  - STAPHYLOCOCCAL SCALDED SKIN SYNDROME [None]
  - STEVENS-JOHNSON SYNDROME [None]
  - UROSEPSIS [None]
